FAERS Safety Report 23812815 (Version 1)
Quarter: 2024Q2

REPORT INFORMATION
  Report Type: Report from Study
  Country: US (occurrence: US)
  Receive Date: 20240503
  Receipt Date: 20240503
  Transmission Date: 20240716
  Serious: Yes (Hospitalization)
  Sender: FDA-Public Use
  Company Number: US-PARATEK PHARMACEUTICALS, INC.-2023PTK00597

PATIENT
  Age: 76 Year
  Sex: Male
  Weight: 88.435 kg

DRUGS (9)
  1. NUZYRA [Suspect]
     Active Substance: OMADACYCLINE
     Indication: Mycobacterium chelonae infection
     Dosage: 300 MG, 1X/DAY
     Route: 048
     Dates: start: 202306
  2. NUZYRA [Suspect]
     Active Substance: OMADACYCLINE
     Indication: Skin bacterial infection
     Dosage: 300 MG, 1X/DAY
     Route: 048
  3. AZITHROMYCIN [Concomitant]
     Active Substance: AZITHROMYCIN
  4. SYNTHROID [Concomitant]
     Active Substance: LEVOTHYROXINE SODIUM
  5. NADOLOL [Concomitant]
     Active Substance: NADOLOL
  6. LISINOPRIL [Concomitant]
     Active Substance: LISINOPRIL
  7. CRESTOR [Concomitant]
     Active Substance: ROSUVASTATIN CALCIUM
  8. ELIQUIS [Concomitant]
     Active Substance: APIXABAN
  9. VITAMINS NOS [Concomitant]
     Active Substance: VITAMINS

REACTIONS (2)
  - Abscess limb [Recovering/Resolving]
  - Drug ineffective for unapproved indication [Recovering/Resolving]

NARRATIVE: CASE EVENT DATE: 20230601
